FAERS Safety Report 15138026 (Version 1)
Quarter: 2018Q3

REPORT INFORMATION
  Report Type: Spontaneous
  Country: US (occurrence: US)
  Receive Date: 20180712
  Receipt Date: 20180712
  Transmission Date: 20181010
  Serious: Yes (Hospitalization)
  Sender: FDA-Public Use
  Company Number: US-JNJFOC-20180634901

PATIENT
  Age: 66 Year
  Sex: Female
  Weight: 106.6 kg

DRUGS (5)
  1. XARELTO [Suspect]
     Active Substance: RIVAROXABAN
     Indication: ATRIAL FIBRILLATION
     Route: 048
     Dates: start: 20171113, end: 20180626
  2. XARELTO [Suspect]
     Active Substance: RIVAROXABAN
     Indication: CEREBROVASCULAR ACCIDENT PROPHYLAXIS
     Route: 048
     Dates: start: 20171113, end: 20180626
  3. BENICAR [Concomitant]
     Active Substance: OLMESARTAN MEDOXOMIL
     Route: 065
  4. ARMOUR THYROID [Concomitant]
     Active Substance: THYROID, PORCINE
     Route: 065
  5. TOPROL XL [Concomitant]
     Active Substance: METOPROLOL SUCCINATE
     Route: 065

REACTIONS (2)
  - Food interaction [Unknown]
  - Haematinuria [Not Recovered/Not Resolved]

NARRATIVE: CASE EVENT DATE: 2018
